FAERS Safety Report 5683923-5 (Version None)
Quarter: 2008Q1

REPORT INFORMATION
  Report Type: 
  Country: None (occurrence: None)
  Receive Date: 20080303
  Receipt Date: 20080320
  Transmission Date: 20080703
  Serious: Yes (Death)
  Sender: FDA-Public Use
  Company Number: US-BRACCO-000429

PATIENT
  Sex: Male
  Weight: 101 kg

DRUGS (4)
  1. MULTIHANCE [Suspect]
     Indication: ANGIOGRAM
     Route: 042
     Dates: start: 20080310, end: 20080310
  2. MULTIHANCE [Suspect]
     Indication: PERIPHERAL VASCULAR DISORDER
     Route: 042
     Dates: start: 20080310, end: 20080310
  3. XANAX [Concomitant]
     Route: 065
  4. EPINEPHRINE                        /00003901/ [Concomitant]
     Route: 065
     Dates: start: 20080310, end: 20080310

REACTIONS (3)
  - CARDIAC ARREST [None]
  - CHEST PAIN [None]
  - LOSS OF CONSCIOUSNESS [None]
